FAERS Safety Report 11976401 (Version 1)
Quarter: 2016Q1

REPORT INFORMATION
  Report Type: Spontaneous
  Country: US (occurrence: US)
  Receive Date: 20160129
  Receipt Date: 20160129
  Transmission Date: 20160526
  Serious: Yes (Other)
  Sender: FDA-Public Use
  Company Number: US-ACTAVIS-2015-22521

PATIENT
  Sex: Female

DRUGS (1)
  1. QUINAPRIL [Suspect]
     Active Substance: QUINAPRIL\QUINAPRIL HYDROCHLORIDE
     Indication: PRODUCT USED FOR UNKNOWN INDICATION
     Dosage: TWO 10 MG IN THE MORNING AND TWO 10 MG AT NIGHT
     Route: 048

REACTIONS (3)
  - Bronchitis [Unknown]
  - Cardiac flutter [Unknown]
  - Cough [Unknown]

NARRATIVE: CASE EVENT DATE: 201507
